FAERS Safety Report 10100044 (Version 1)
Quarter: 2014Q2

REPORT INFORMATION
  Report Type: Spontaneous
  Country: US (occurrence: US)
  Receive Date: 20140423
  Receipt Date: 20140423
  Transmission Date: 20141212
  Serious: No
  Sender: FDA-Public Use
  Company Number: US-TARO-2013P1005855

PATIENT
  Age: 64 Year
  Sex: Female
  Weight: 65.77 kg

DRUGS (6)
  1. NYSTATIN + TRIAMCINOLONE ACETONIDE OINTMENT [Suspect]
     Route: 061
     Dates: start: 20130129, end: 2013
  2. NYSTATIN + TRIAMCINOLONE ACETONIDE OINTMENT [Suspect]
     Route: 061
     Dates: start: 20130502, end: 20130506
  3. PROLIA INJECTION [Concomitant]
     Dates: start: 201212
  4. CRESTOR [Concomitant]
  5. ZANTAC [Concomitant]
  6. ATIVAN [Concomitant]

REACTIONS (2)
  - Drug ineffective for unapproved indication [Not Recovered/Not Resolved]
  - Erythema [Not Recovered/Not Resolved]
